FAERS Safety Report 9909179 (Version 4)
Quarter: 2014Q1

REPORT INFORMATION
  Report Type: Spontaneous
  Country: BE (occurrence: BE)
  Receive Date: 20140219
  Receipt Date: 20140328
  Transmission Date: 20141002
  Serious: Yes (Hospitalization)
  Sender: FDA-Public Use
  Company Number: BE-UCBSA-112377

PATIENT
  Age: 75 Year
  Sex: Female
  Weight: 52 kg

DRUGS (18)
  1. KEPPRA [Suspect]
     Indication: CONVULSION
     Route: 048
     Dates: start: 20140115
  2. KEPPRA [Suspect]
     Indication: EPILEPSY
     Route: 048
     Dates: start: 20140115
  3. TDM1 [Suspect]
     Indication: BREAST CANCER
     Route: 042
     Dates: start: 20130305, end: 20131126
  4. UNI DIAMICRON [Suspect]
     Indication: DIABETES MELLITUS
     Route: 048
     Dates: end: 20140203
  5. OMEPRAZOLE [Suspect]
     Indication: GASTRIC ULCER
     Route: 048
     Dates: start: 20140107, end: 20140130
  6. OMEPRAZOLE [Suspect]
     Indication: GASTRIC ULCER
     Route: 048
     Dates: start: 20140130, end: 20140203
  7. DEPAKINE [Suspect]
     Indication: EPILEPSY
     Dosage: ON 04/JAN/2014 LOADING DOSE OF 1400 MG AND 2400 MG IN RELAY IVC ORALLY ON 06/JAN/2014
     Route: 048
     Dates: start: 20140104, end: 20140105
  8. VALPROATE [Concomitant]
     Indication: CONVULSION
  9. BISOPROLOL [Concomitant]
     Indication: HYPERTENSION
     Route: 048
  10. AGGRENOX [Concomitant]
     Indication: CEREBROVASCULAR ACCIDENT
     Dosage: 1 DOSE TWICE DAILY
     Route: 048
     Dates: end: 20140117
  11. D CURE [Concomitant]
     Indication: VITAMIN D
     Route: 048
  12. DUROGESIC [Concomitant]
     Indication: PAIN MANAGEMENT
     Dosage: 12.5 ?G/H
     Route: 062
  13. GLUCOPHAGE [Concomitant]
     Indication: DIABETES MELLITUS
     Route: 048
     Dates: end: 20140131
  14. DAFALGAN [Concomitant]
     Indication: PAIN MANAGEMENT
     Dosage: USE IF NECESSARY
     Route: 048
  15. MICARDIS [Concomitant]
     Indication: HYPERTENSION
     Route: 048
     Dates: start: 20140106
  16. DEXAMETHASONE [Concomitant]
     Route: 048
     Dates: start: 20140106, end: 20140121
  17. D VITAL [Concomitant]
     Indication: MINERAL SUPPLEMENTATION
     Route: 048
     Dates: start: 20140106
  18. ZANTAC [Concomitant]
     Indication: GASTRIC ULCER
     Route: 048
     Dates: start: 20140103

REACTIONS (2)
  - Thrombocytopenia [Recovered/Resolved]
  - Liver function test abnormal [Unknown]
